FAERS Safety Report 5052479-2 (Version None)
Quarter: 2006Q3

REPORT INFORMATION
  Report Type: 
  Country: None (occurrence: None)
  Receive Date: 20060712
  Receipt Date: 20060712
  Transmission Date: 20061208
  Serious: Yes (Other)
  Sender: FDA-Public Use
  Company Number: None

PATIENT
  Age: 38 Year
  Sex: Female
  Weight: 108.8633 kg

DRUGS (4)
  1. LUPRON [Suspect]
     Indication: ABDOMINAL PAIN
     Dosage: MONTHLY INJECTION    IM
     Route: 030
     Dates: start: 20051210, end: 20060210
  2. LUPRON [Suspect]
     Indication: DYSMENORRHOEA
     Dosage: MONTHLY INJECTION    IM
     Route: 030
     Dates: start: 20051210, end: 20060210
  3. LUPRON [Suspect]
     Indication: ENDOMETRIOSIS
     Dosage: MONTHLY INJECTION    IM
     Route: 030
     Dates: start: 20051210, end: 20060210
  4. LUPRON [Suspect]
     Indication: OVULATION PAIN
     Dosage: MONTHLY INJECTION    IM
     Route: 030
     Dates: start: 20051210, end: 20060210

REACTIONS (9)
  - ASTHENIA [None]
  - FATIGUE [None]
  - MUSCULOSKELETAL STIFFNESS [None]
  - MYALGIA [None]
  - NAUSEA [None]
  - PAIN [None]
  - PARAESTHESIA [None]
  - SENSORY DISTURBANCE [None]
  - WEIGHT INCREASED [None]
